FAERS Safety Report 11702247 (Version 1)
Quarter: 2015Q4

REPORT INFORMATION
  Report Type: Spontaneous
  Country: US (occurrence: US)
  Receive Date: 20151105
  Receipt Date: 20151105
  Transmission Date: 20160304
  Serious: Yes (Other)
  Sender: FDA-Public Use
  Company Number: US-FRESENIUS KABI-FK201505661

PATIENT
  Age: 67 Year
  Sex: Female

DRUGS (3)
  1. LIDOCAINE. [Concomitant]
     Active Substance: LIDOCAINE
     Indication: ADJUVANT THERAPY
     Route: 065
  2. VANCOMYCIN (MANUFACTURER UNKNOWN) [Suspect]
     Active Substance: VANCOMYCIN
     Indication: PROPHYLAXIS
     Route: 050
  3. SODIUM HYALURONATE [Concomitant]
     Active Substance: HYALURONATE SODIUM
     Indication: ADJUVANT THERAPY
     Route: 065

REACTIONS (4)
  - Glaucoma [Recovered/Resolved]
  - Retinal vasculitis [Recovered/Resolved with Sequelae]
  - Haemorrhagic vasculitis [Recovered/Resolved with Sequelae]
  - Product use issue [Recovered/Resolved with Sequelae]
